FAERS Safety Report 11226400 (Version 1)
Quarter: 2015Q2

REPORT INFORMATION
  Report Type: Spontaneous
  Country: US (occurrence: US)
  Receive Date: 20150629
  Receipt Date: 20150629
  Transmission Date: 20150821
  Serious: Yes (Other)
  Sender: FDA-Public Use
  Company Number: US-BAXTER-2015BAX034280

PATIENT
  Age: 44 Year
  Sex: Female

DRUGS (17)
  1. PROPOFOL. [Suspect]
     Active Substance: PROPOFOL
     Indication: INDUCTION OF ANAESTHESIA
     Route: 065
  2. CAFFEINE. [Suspect]
     Active Substance: CAFFEINE
     Indication: NAUSEA
     Route: 042
  3. RINGERS [Suspect]
     Active Substance: CALCIUM CHLORIDE\POTASSIUM CHLORIDE\SODIUM CHLORIDE
     Indication: NAUSEA
  4. ONDANSETRON [Suspect]
     Active Substance: ONDANSETRON
     Indication: HEADACHE
  5. ONDANSETRON [Suspect]
     Active Substance: ONDANSETRON
     Indication: PROPHYLAXIS OF NAUSEA AND VOMITING
  6. CAFFEINE. [Suspect]
     Active Substance: CAFFEINE
     Indication: HEADACHE
  7. METOCLOPRAMIDE. [Concomitant]
     Active Substance: METOCLOPRAMIDE
     Indication: PROPHYLAXIS
     Route: 042
  8. SEVOFLURANE, USP [Suspect]
     Active Substance: SEVOFLURANE
     Indication: GENERAL ANAESTHESIA
     Route: 055
  9. ONDANSETRON [Suspect]
     Active Substance: ONDANSETRON
     Indication: NAUSEA
     Route: 065
  10. ALFENTANIL [Suspect]
     Active Substance: ALFENTANIL
     Indication: INDUCTION OF ANAESTHESIA
     Route: 065
  11. SUCCINYLCHOLINE [Suspect]
     Active Substance: SUCCINYLCHOLINE
     Indication: INDUCTION OF ANAESTHESIA
     Route: 065
  12. KETOROLAC [Suspect]
     Active Substance: KETOROLAC\KETOROLAC TROMETHAMINE
     Indication: HEADACHE
  13. DIPHENHYDRAMINE [Concomitant]
     Active Substance: DIPHENHYDRAMINE
     Indication: PROPHYLAXIS OF NAUSEA AND VOMITING
     Route: 042
  14. SODIUM CITRATE. [Concomitant]
     Active Substance: SODIUM CITRATE
     Indication: PROPHYLAXIS OF NAUSEA AND VOMITING
     Dosage: 30 CUBIC CENTIMETERS
     Route: 048
  15. MIDAZOLAM [Concomitant]
     Active Substance: MIDAZOLAM\MIDAZOLAM HYDROCHLORIDE
     Indication: PRODUCT USED FOR UNKNOWN INDICATION
     Route: 042
  16. RINGERS [Suspect]
     Active Substance: CALCIUM CHLORIDE\POTASSIUM CHLORIDE\SODIUM CHLORIDE
     Indication: HEADACHE
     Route: 042
  17. KETOROLAC [Suspect]
     Active Substance: KETOROLAC\KETOROLAC TROMETHAMINE
     Indication: NAUSEA
     Route: 065

REACTIONS (4)
  - Nausea [Recovered/Resolved]
  - Retinopathy haemorrhagic [Recovered/Resolved]
  - Headache [Recovered/Resolved]
  - Post procedural complication [Recovered/Resolved]
